FAERS Safety Report 7283058-4 (Version None)
Quarter: 2011Q1

REPORT INFORMATION
  Report Type: 
  Country: None (occurrence: None)
  Receive Date: 20110209
  Receipt Date: 20110131
  Transmission Date: 20110831
  Serious: Yes (Other)
  Sender: FDA-Public Use
  Company Number: IT-JNJFOC-JRFBEL2000001398

PATIENT
  Age: 57 Year
  Sex: Male

DRUGS (6)
  1. MEGESTROL ACETATE [Concomitant]
  2. MICONAZOLE [Suspect]
     Route: 048
  3. WARFARIN [Interacting]
     Route: 048
  4. GONADORELIN INJ [Concomitant]
  5. WARFARIN [Interacting]
     Indication: DEEP VEIN THROMBOSIS
     Route: 048
  6. MICONAZOLE [Suspect]
     Indication: ORAL CANDIDIASIS
     Dosage: 125 MG THRICE A DAY
     Route: 048

REACTIONS (2)
  - DRUG INTERACTION [None]
  - HAEMATURIA [None]
